FAERS Safety Report 6956431-9 (Version None)
Quarter: 2010Q3

REPORT INFORMATION
  Report Type: 
  Country: None (occurrence: None)
  Receive Date: 20100830
  Receipt Date: 20100823
  Transmission Date: 20110219
  Serious: Yes (Hospitalization)
  Sender: FDA-Public Use
  Company Number: B0671793A

PATIENT
  Sex: Female
  Weight: 70 kg

DRUGS (7)
  1. LAPATINIB [Suspect]
     Indication: BREAST CANCER
     Dosage: 1000MG PER DAY
     Route: 048
     Dates: start: 20100107
  2. DOCETAXEL [Suspect]
     Indication: BREAST CANCER
     Dosage: 75MGM2 EVERY 3 WEEKS
     Route: 042
     Dates: start: 20100107
  3. TRASTUZUMAB [Suspect]
     Indication: BREAST CANCER
     Dosage: 2MGK WEEKLY
     Route: 042
     Dates: start: 20100107
  4. PROPAFENONE HCL [Concomitant]
     Indication: ARRHYTHMIA
     Dosage: 150MG THREE TIMES PER DAY
     Route: 048
     Dates: start: 20050901
  5. RAMIPRIL [Concomitant]
     Indication: HYPERTENSION
     Dosage: 2.5MG PER DAY
     Route: 048
     Dates: start: 20100614, end: 20100616
  6. UNKNOWN DRUG [Concomitant]
     Indication: HYPERTENSION
     Dosage: 3MG PER DAY
     Route: 048
     Dates: start: 20031201, end: 20100614
  7. ASPIRIN [Concomitant]
     Indication: ARRHYTHMIA
     Dosage: 100MG PER DAY
     Route: 048
     Dates: start: 19930101

REACTIONS (1)
  - ATRIAL FIBRILLATION [None]
